FAERS Safety Report 8389715-0 (Version None)
Quarter: 2012Q2

REPORT INFORMATION
  Report Type: 
  Country: None (occurrence: None)
  Receive Date: 20120522
  Receipt Date: 20120522
  Transmission Date: 20120825
  Serious: No
  Sender: FDA-Public Use
  Company Number: None

PATIENT
  Age: 47 Year
  Sex: Female
  Weight: 72.1219 kg

DRUGS (1)
  1. QUETIAPINE [Suspect]
     Indication: DEPRESSION
     Dosage: ONE PO QHS
     Route: 048

REACTIONS (1)
  - RESTLESSNESS [None]
